FAERS Safety Report 10371571 (Version 2)
Quarter: 2014Q3

REPORT INFORMATION
  Report Type: Report from Study
  Country: US (occurrence: US)
  Receive Date: 20140808
  Receipt Date: 20140827
  Transmission Date: 20150326
  Serious: Yes (Hospitalization)
  Sender: FDA-Public Use
  Company Number: US-SA-2014SA104221

PATIENT
  Age: 27 Year
  Sex: Female

DRUGS (1)
  1. AUBAGIO [Suspect]
     Active Substance: TERIFLUNOMIDE
     Indication: MULTIPLE SCLEROSIS
     Route: 048
     Dates: start: 20140626, end: 20140801

REACTIONS (11)
  - Abdominal pain upper [Unknown]
  - Pyrexia [Unknown]
  - Head injury [Unknown]
  - Bladder disorder [Unknown]
  - Dizziness [Unknown]
  - Diarrhoea [Unknown]
  - Chills [Unknown]
  - Abdominal symptom [Unknown]
  - Malaise [Unknown]
  - Fall [Unknown]
  - Faecal incontinence [Unknown]
